FAERS Safety Report 4774976-7 (Version None)
Quarter: 2005Q3

REPORT INFORMATION
  Report Type: 
  Country: None (occurrence: None)
  Receive Date: 20050921
  Receipt Date: 20050915
  Transmission Date: 20060218
  Serious: Yes (Hospitalization)
  Sender: FDA-Public Use
  Company Number: BR-JNJFOC-20050904359

PATIENT
  Age: 37 Year
  Sex: Male

DRUGS (6)
  1. TYLENOL [Suspect]
  2. TYLENOL [Suspect]
     Indication: SUICIDE ATTEMPT
  3. CARBAMAZEPINE [Suspect]
     Indication: SUICIDE ATTEMPT
  4. METHOTREXATE [Suspect]
     Indication: SUICIDE ATTEMPT
  5. FLUCONAZOLE [Suspect]
     Indication: SUICIDE ATTEMPT
  6. DICLOFENAC [Suspect]
     Indication: SUICIDE ATTEMPT

REACTIONS (2)
  - INTENTIONAL MISUSE [None]
  - SOMNOLENCE [None]
